FAERS Safety Report 4864136-3 (Version None)
Quarter: 2005Q4

REPORT INFORMATION
  Report Type: 
  Country: None (occurrence: None)
  Receive Date: 20051222
  Receipt Date: 20051215
  Transmission Date: 20060501
  Serious: Yes (Other)
  Sender: FDA-Public Use
  Company Number: SW11126

PATIENT
  Sex: Female

DRUGS (3)
  1. LITHIUM [Suspect]
     Indication: BIPOLAR I DISORDER
     Dosage: 800MG UNKNOWN
     Route: 065
     Dates: start: 19790101
  2. DEPAKOTE [Concomitant]
     Indication: BIPOLAR I DISORDER
     Dosage: 250MG TWICE PER DAY
     Route: 065
  3. BIOTIN [Concomitant]
     Dosage: .3MG FOUR TIMES PER DAY
     Route: 065

REACTIONS (4)
  - BLOOD CREATINE INCREASED [None]
  - BLOOD UREA INCREASED [None]
  - NEPHROPATHY TOXIC [None]
  - TREMOR [None]
